FAERS Safety Report 5720423 (Version 3)
Quarter: 2013Q4

REPORT INFORMATION
  Report Type: Spontaneous
  Country: AU (occurrence: AU)
  Receive Date: 20050121
  Receipt Date: 20131211
  Transmission Date: 20140711
  Serious: Yes (Other)
  Sender: FDA-Public Use
  Company Number: AU-ROCHE-392389

PATIENT
  Age: 31 Year
  Sex: Female
  Weight: 63 kg

DRUGS (3)
  1. ROACCUTANE [Suspect]
     Indication: ACNE
     Route: 048
     Dates: start: 20041005, end: 20041116
  2. ROACCUTANE [Suspect]
     Route: 048
     Dates: start: 200407, end: 20041005
  3. DOXYCYCLINE [Concomitant]
     Dosage: DAILY DOSE=50 UNIT
     Route: 065

REACTIONS (8)
  - Suicidal ideation [Recovered/Resolved]
  - Fatigue [Recovered/Resolved]
  - Anxiety [Recovered/Resolved]
  - Anger [Recovered/Resolved]
  - Anxiety [Unknown]
  - Lethargy [Unknown]
  - Mood altered [Unknown]
  - Depression [Unknown]
